FAERS Safety Report 21215913 (Version 1)
Quarter: 2022Q3

REPORT INFORMATION
  Report Type: Spontaneous
  Country: AU (occurrence: AU)
  Receive Date: 20220816
  Receipt Date: 20220816
  Transmission Date: 20221027
  Serious: Yes (Hospitalization)
  Sender: FDA-Public Use
  Company Number: AU-SAMSUNG BIOEPIS-SB-2022-20077

PATIENT
  Age: 51 Year
  Sex: Male
  Weight: 86 kg

DRUGS (6)
  1. ETANERCEPT [Suspect]
     Active Substance: ETANERCEPT
     Indication: Toxic epidermal necrolysis
     Dosage: STAT DOSE
     Route: 058
  2. IBUPROFEN [Concomitant]
     Active Substance: IBUPROFEN
     Indication: Product used for unknown indication
     Dosage: UNKNOWN
     Route: 065
  3. DEXAMETHASONE [Concomitant]
     Active Substance: DEXAMETHASONE
     Indication: Toxic epidermal necrolysis
     Route: 042
  4. CYCLOSPORINE [Concomitant]
     Active Substance: CYCLOSPORINE
     Indication: Toxic epidermal necrolysis
     Dosage: NGT
     Route: 065
  5. CYCLOSPORINE [Concomitant]
     Active Substance: CYCLOSPORINE
     Dosage: NGT
     Route: 065
  6. CYCLOSPORINE [Concomitant]
     Active Substance: CYCLOSPORINE
     Dosage: NGT
     Route: 065

REACTIONS (4)
  - Hypomagnesaemia [Unknown]
  - Urinary tract infection pseudomonal [Unknown]
  - Transplant failure [Unknown]
  - Off label use [Unknown]
